FAERS Safety Report 9377394 (Version 8)
Quarter: 2013Q4

REPORT INFORMATION
  Report Type: Report from Study
  Country: AU (occurrence: AU)
  Receive Date: 20130701
  Receipt Date: 20131205
  Transmission Date: 20140711
  Serious: Yes (Hospitalization, Other)
  Sender: FDA-Public Use
  Company Number: PHHO2011AU17237

PATIENT
  Age: 64 Year
  Sex: Male
  Weight: 62 kg

DRUGS (27)
  1. ALISKIREN [Suspect]
     Indication: CARDIAC FAILURE CHRONIC
     Dosage: 150 MG, DAILY
     Route: 048
     Dates: start: 20100105, end: 20130604
  2. ALISKIREN [Suspect]
     Dosage: 150 MG, DAILY
     Route: 048
     Dates: start: 20130606, end: 20130606
  3. ALISKIREN [Suspect]
     Dosage: 150 MG, DAILY
     Route: 048
     Dates: end: 20130614
  4. ENALAPRIL [Suspect]
     Indication: CARDIAC FAILURE CHRONIC
     Dosage: 5 MG, BID
     Route: 048
     Dates: start: 20100105, end: 20130604
  5. ENALAPRIL [Suspect]
     Dosage: 5 MG, BID
     Route: 048
     Dates: start: 20130606, end: 20130606
  6. ENALAPRIL [Suspect]
     Dosage: 5 MG, BID
     Route: 048
     Dates: end: 20130614
  7. LASIX [Suspect]
     Indication: CARDIAC FAILURE
     Dosage: 40 MG, QD
     Route: 048
     Dates: start: 20130605, end: 20130613
  8. LASIX [Suspect]
     Dosage: 20 MG, BID
     Route: 048
     Dates: start: 20130704
  9. LASIX [Suspect]
     Dosage: 80 MG, BID
     Route: 048
     Dates: start: 20130825
  10. LASIX [Suspect]
     Dosage: 40 MG AM, 80 MG PM
     Route: 048
     Dates: start: 20130826, end: 20130916
  11. DILATREND [Concomitant]
     Indication: CARDIAC FAILURE
     Dosage: 25 MG, BID
     Route: 048
     Dates: start: 20100504, end: 20130614
  12. DILATREND [Concomitant]
     Dosage: 12.5 MG, BID
     Route: 048
     Dates: start: 20130630
  13. CRESTOR [Concomitant]
     Indication: CARDIAC FAILURE
     Dosage: 2.5 MG, QD
     Route: 048
     Dates: start: 201102
  14. CRESTOR [Concomitant]
     Indication: HYPERCHOLESTEROLAEMIA
  15. ALDACTONE [Concomitant]
     Indication: CARDIAC FAILURE
     Dosage: 2.5 MG, QD
     Route: 048
     Dates: start: 20121024, end: 20130613
  16. ALDACTONE [Concomitant]
     Indication: TACHYARRHYTHMIA
     Dosage: 12.5 MG, QD
     Route: 048
     Dates: start: 201307
  17. WARFARIN [Concomitant]
     Indication: TRANSIENT ISCHAEMIC ATTACK
     Dosage: 3 MG, DAILY
     Route: 048
  18. COVERSYL [Concomitant]
     Dosage: UNK
     Dates: end: 20121024
  19. PANTOPRAZOLE [Concomitant]
     Indication: GASTROOESOPHAGEAL REFLUX DISEASE
     Dosage: 40 MG, QD
     Route: 048
     Dates: start: 20130621
  20. PANTOPRAZOLE [Concomitant]
     Indication: HYPERCHOLESTEROLAEMIA
  21. IMDUR [Concomitant]
     Indication: CHEST PAIN
     Dosage: 30 MG, QD
     Route: 048
     Dates: start: 20130626
  22. OSTELIN [Concomitant]
     Indication: VITAMIN D DEFICIENCY
     Dosage: 1000 UG, QD
     Route: 048
     Dates: start: 20130905
  23. CANDESARTAN [Concomitant]
     Indication: CARDIAC FAILURE
     Dosage: 4 MG, QD
     Route: 048
     Dates: start: 201307
  24. CARVEDILOL [Concomitant]
     Dosage: 12.5 MG, TID
  25. CARVEDILOL [Concomitant]
     Dosage: 18.75 MG, BID
     Dates: start: 20130626
  26. MAGNESIUM [Concomitant]
     Indication: CARDIAC FAILURE
     Dosage: 1 G, BID
     Route: 048
     Dates: start: 20130622, end: 20130830
  27. AMIODARONE [Concomitant]
     Indication: VENTRICULAR TACHYCARDIA
     Dosage: 200 MG, QD
     Route: 048
     Dates: start: 20130614

REACTIONS (6)
  - Acute pulmonary oedema [Recovered/Resolved]
  - Non-cardiac chest pain [Recovered/Resolved]
  - Cardiac failure [Recovered/Resolved]
  - Concomitant disease progression [Recovered/Resolved]
  - Dyspnoea [Recovered/Resolved]
  - Chest pain [Recovered/Resolved]
